FAERS Safety Report 19597543 (Version 1)
Quarter: 2021Q3

REPORT INFORMATION
  Report Type: Spontaneous
  Country: US (occurrence: US)
  Receive Date: 20210722
  Receipt Date: 20210722
  Transmission Date: 20211014
  Serious: Yes (Hospitalization)
  Sender: FDA-Public Use
  Company Number: None

PATIENT
  Age: 61 Year
  Sex: Male
  Weight: 103.95 kg

DRUGS (2)
  1. IMDEVIMAB. [Suspect]
     Active Substance: IMDEVIMAB
     Indication: SARS-COV-2 TEST POSITIVE
     Dosage: ?          OTHER FREQUENCY:ONE TIME DOSE;?
     Route: 042
     Dates: start: 20210721, end: 20210721
  2. CASIRIVIMAB. [Suspect]
     Active Substance: CASIRIVIMAB
     Indication: SARS-COV-2 TEST POSITIVE
     Dosage: ?          OTHER FREQUENCY:ONE TIME DOSE;?
     Route: 042
     Dates: start: 20210721, end: 20210721

REACTIONS (11)
  - Neuropathy peripheral [None]
  - Pain [None]
  - Feeling hot [None]
  - Oxygen saturation decreased [None]
  - Pyrexia [None]
  - Dyspnoea [None]
  - Tremor [None]
  - Vision blurred [None]
  - Chills [None]
  - Headache [None]
  - Body temperature increased [None]

NARRATIVE: CASE EVENT DATE: 20210721
